FAERS Safety Report 25345560 (Version 1)
Quarter: 2025Q2

REPORT INFORMATION
  Report Type: Spontaneous
  Country: US (occurrence: US)
  Receive Date: 20250522
  Receipt Date: 20250522
  Transmission Date: 20250717
  Serious: Yes (Hospitalization)
  Sender: ROCHE
  Company Number: US-ROCHE-10000285526

PATIENT
  Sex: Female

DRUGS (22)
  1. INAVOLISIB [Suspect]
     Active Substance: INAVOLISIB
     Indication: Breast cancer metastatic
     Route: 065
  2. INAVOLISIB [Suspect]
     Active Substance: INAVOLISIB
     Indication: Metastases to peritoneum
  3. INAVOLISIB [Suspect]
     Active Substance: INAVOLISIB
     Indication: Metastases to bone
  4. IBRANCE [Suspect]
     Active Substance: PALBOCICLIB
     Indication: Breast cancer metastatic
     Route: 048
     Dates: start: 20250408
  5. IBRANCE [Suspect]
     Active Substance: PALBOCICLIB
     Indication: Metastases to peritoneum
  6. IBRANCE [Suspect]
     Active Substance: PALBOCICLIB
     Indication: Metastases to bone
  7. FULVESTRANT [Suspect]
     Active Substance: FULVESTRANT
     Indication: Breast cancer metastatic
     Route: 065
  8. FULVESTRANT [Suspect]
     Active Substance: FULVESTRANT
     Indication: Metastases to peritoneum
  9. FULVESTRANT [Suspect]
     Active Substance: FULVESTRANT
     Indication: Metastases to bone
  10. ASPIRIN [Concomitant]
     Active Substance: ASPIRIN
  11. FAMOTIDINE [Concomitant]
     Active Substance: FAMOTIDINE
  12. METOPROLOL [Concomitant]
     Active Substance: METOPROLOL
  13. Multiple Vit [Concomitant]
  14. SUCRALFATE [Concomitant]
     Active Substance: SUCRALFATE
  15. TRIAMCINOLONE [Concomitant]
     Active Substance: TRIAMCINOLONE
  16. VITAMIN C [Concomitant]
     Active Substance: ASCORBIC ACID
  17. VITAMIN D [Concomitant]
     Active Substance: VITAMIN D NOS
  18. VITAMIN E [Concomitant]
     Active Substance: .ALPHA.-TOCOPHEROL
  19. XGEVA [Concomitant]
     Active Substance: DENOSUMAB
  20. ZOMETA [Concomitant]
     Active Substance: ZOLEDRONIC ACID
  21. calcium/Vit d [Concomitant]
  22. VITAMIN B COMPLEX [Concomitant]
     Active Substance: CYANOCOBALAMIN\DEXPANTHENOL\NIACINAMIDE\PYRIDOXINE HYDROCHLORIDE\RIBOFLAVIN 5^-PHOSPHATE SODIUM\THIA

REACTIONS (4)
  - Acute kidney injury [Unknown]
  - Metastases to peritoneum [Unknown]
  - Fatigue [Unknown]
  - Dizziness [Unknown]
